FAERS Safety Report 7548598-9 (Version None)
Quarter: 2011Q2

REPORT INFORMATION
  Report Type: 
  Country: None (occurrence: None)
  Receive Date: 20110615
  Receipt Date: 20110607
  Transmission Date: 20111010
  Serious: Yes (Hospitalization, Other)
  Sender: FDA-Public Use
  Company Number: US-BRISTOL-MYERS SQUIBB COMPANY-15810211

PATIENT
  Age: 83 Year
  Sex: Male

DRUGS (20)
  1. ALFUZOSIN HCL [Concomitant]
  2. ALPRAZOLAM [Concomitant]
  3. POTASSIUM CHLORIDE [Concomitant]
  4. NORTRIPTYLINE [Concomitant]
  5. GLUCOSAMINE [Concomitant]
  6. FINASTERIDE [Concomitant]
  7. FLUDROCORTISONE ACETATE [Concomitant]
  8. LEVOTHYROXINE SODIUM [Concomitant]
  9. DRISDOL [Concomitant]
  10. IBUROFEN [Concomitant]
  11. TESSALON [Concomitant]
  12. MEGACE [Suspect]
     Indication: IDIOPATHIC PULMONARY FIBROSIS
     Dates: start: 20081007, end: 20110401
  13. WARFARIN SODIUM [Suspect]
     Indication: DEEP VEIN THROMBOSIS
  14. CLONIDINE [Concomitant]
  15. ASPIRIN [Concomitant]
  16. ARICEPT [Concomitant]
  17. LOVENOX [Suspect]
     Indication: DEEP VEIN THROMBOSIS
  18. LEXAPRO [Concomitant]
  19. VITAMIN B-12 [Concomitant]
  20. CETIRIZINE HCL [Concomitant]

REACTIONS (3)
  - ACUTE MYOCARDIAL INFARCTION [None]
  - EMBOLISM [None]
  - INTERNATIONAL NORMALISED RATIO INCREASED [None]
